FAERS Safety Report 11285755 (Version 1)
Quarter: 2015Q3

REPORT INFORMATION
  Report Type: Spontaneous
  Country: US (occurrence: US)
  Receive Date: 20150721
  Receipt Date: 20150721
  Transmission Date: 20151125
  Serious: No
  Sender: FDA-Public Use
  Company Number: US-009507513-1507USA003174

PATIENT
  Sex: Female

DRUGS (1)
  1. NUVARING [Suspect]
     Active Substance: ETHINYL ESTRADIOL\ETONOGESTREL
     Indication: CONTRACEPTION
     Dosage: 1 DF, 1 RING/ 4 WEEKS
     Route: 067
     Dates: start: 201505

REACTIONS (3)
  - Incorrect drug administration duration [Unknown]
  - Drug prescribing error [Unknown]
  - Device expulsion [Unknown]

NARRATIVE: CASE EVENT DATE: 2015
